FAERS Safety Report 10435853 (Version 3)
Quarter: 2020Q3

REPORT INFORMATION
  Report Type: Report from Study
  Country: DE (occurrence: DE)
  Receive Date: 20140908
  Receipt Date: 20140909
  Transmission Date: 20201105
  Serious: Yes (Hospitalization)
  Sender: FDA-Public Use
  Company Number: DE-ROCHE-1438011

PATIENT
  Age: 70 Year
  Sex: Female
  Weight: 68 kg

DRUGS (15)
  1. IBANDRONIC ACID. [Suspect]
     Active Substance: IBANDRONIC ACID
     Indication: OSTEOLYSIS
     Route: 042
     Dates: start: 20130611
  2. GELOSITIN [Concomitant]
     Indication: EPISTAXIS
     Route: 065
     Dates: start: 20130430, end: 20130510
  3. CAPECITABINE. [Concomitant]
     Active Substance: CAPECITABINE
     Route: 048
     Dates: start: 20130327, end: 20130410
  4. CAPECITABINE. [Concomitant]
     Active Substance: CAPECITABINE
     Route: 048
     Dates: start: 20130306, end: 20130320
  5. CAPECITABINE. [Concomitant]
     Active Substance: CAPECITABINE
     Route: 048
     Dates: start: 20130709, end: 20130723
  6. BEVACIZUMAB. [Suspect]
     Active Substance: BEVACIZUMAB
     Indication: BREAST CANCER
     Route: 042
     Dates: start: 20120213, end: 20120213
  7. ZOLEDRONIC ACID [Suspect]
     Active Substance: ZOLEDRONIC ACID
     Indication: BREAST CANCER
     Route: 042
     Dates: start: 20130514, end: 20130514
  8. CAPECITABINE. [Concomitant]
     Active Substance: CAPECITABINE
     Indication: BREAST CANCER
     Route: 048
     Dates: start: 20120213, end: 20130227
  9. CAPECITABINE. [Concomitant]
     Active Substance: CAPECITABINE
     Route: 048
     Dates: start: 20130417, end: 20130501
  10. BEVACIZUMAB. [Suspect]
     Active Substance: BEVACIZUMAB
     Route: 042
     Dates: start: 20130417, end: 20130417
  11. IBANDRONIC ACID. [Suspect]
     Active Substance: IBANDRONIC ACID
     Indication: PAIN
  12. ARCOXIA [Concomitant]
     Active Substance: ETORICOXIB
     Indication: OSTEOLYSIS
     Route: 048
     Dates: start: 20130730, end: 20131112
  13. ARCOXIA [Concomitant]
     Active Substance: ETORICOXIB
     Indication: PAIN
  14. FENTANYL. [Concomitant]
     Active Substance: FENTANYL
     Indication: POLYNEUROPATHY
     Route: 065
     Dates: start: 201307, end: 20130730
  15. CAPECITABINE. [Concomitant]
     Active Substance: CAPECITABINE
     Route: 048
     Dates: start: 20130730, end: 20130813

REACTIONS (1)
  - Pyrexia [Recovered/Resolved]

NARRATIVE: CASE EVENT DATE: 20130515
